FAERS Safety Report 4578407-1 (Version None)
Quarter: 2005Q1

REPORT INFORMATION
  Report Type: 
  Country: None (occurrence: None)
  Receive Date: 20050203
  Receipt Date: 20050203
  Transmission Date: 20050727
  Serious: Yes (Life-Threatening, Hospitalization)
  Sender: FDA-Public Use
  Company Number: None

PATIENT
  Age: 70 Year
  Sex: Female
  Weight: 84.369 kg

DRUGS (6)
  1. NIPENT [Suspect]
     Indication: CHRONIC LYMPHOCYTIC LEUKAEMIA
     Dosage: SEE IMAGE
     Route: 042
     Dates: start: 20041004, end: 20041026
  2. RITUXAN [Suspect]
     Indication: CHRONIC LYMPHOCYTIC LEUKAEMIA
     Dosage: 743 MG   DAY 1+8 Q 21D   INTRAVENOU
     Route: 042
     Dates: start: 20041011, end: 20041026
  3. DIOVAN HCT [Concomitant]
  4. COUMADIN [Concomitant]
  5. MULTI-VITAMIN [Concomitant]
  6. MSM SUPPLEMENT [Concomitant]

REACTIONS (1)
  - IDIOPATHIC THROMBOCYTOPENIC PURPURA [None]
